FAERS Safety Report 24273845 (Version 1)
Quarter: 2024Q3

REPORT INFORMATION
  Report Type: Spontaneous
  Country: GB (occurrence: GB)
  Receive Date: 20240902
  Receipt Date: 20240902
  Transmission Date: 20241016
  Serious: Yes (Hospitalization, Other)
  Sender: TEVA
  Company Number: None

PATIENT
  Age: 57 Year
  Sex: Male
  Weight: 83 kg

DRUGS (1)
  1. RAMIPRIL [Suspect]
     Active Substance: RAMIPRIL
     Indication: Hypertension
     Dosage: 1.25MG ONCE A DAY
     Route: 065
     Dates: start: 20231030, end: 20240524

REACTIONS (1)
  - Cough [Recovered/Resolved]

NARRATIVE: CASE EVENT DATE: 20240521
